FAERS Safety Report 4332337-9 (Version None)
Quarter: 2004Q1

REPORT INFORMATION
  Report Type: 
  Country: None (occurrence: None)
  Receive Date: 20040329
  Receipt Date: 20040128
  Transmission Date: 20041129
  Serious: No
  Sender: FDA-Public Use
  Company Number: 04P-163-0248739-00

PATIENT
  Age: 49 Year
  Sex: Female
  Weight: 86.1834 kg

DRUGS (15)
  1. HUMIRA [Suspect]
     Indication: RHEUMATOID ARTHRITIS
     Dosage: 40 MG, 1 IN 2 WK, SUBCUTANEOUS
     Route: 058
     Dates: start: 20031101
  2. GLUCOPHAGE [Concomitant]
  3. GLYBURIDE [Concomitant]
  4. LANTUS [Concomitant]
  5. RABEPRAZOLE SODIUM [Concomitant]
  6. ATORVASTATIN [Concomitant]
  7. SYNTEST HS [Concomitant]
  8. LEVOTHYROXINE SODIUM [Concomitant]
  9. VENLAFAXINE HCL [Concomitant]
  10. AMITRIPTYLINE HCL [Concomitant]
  11. LISINOPRIL [Concomitant]
  12. METHOCLOPRAMIDE [Concomitant]
  13. ASPIRIN [Concomitant]
  14. HYDROCHLOROTHIAZIDE [Concomitant]
  15. METAXALONE [Concomitant]

REACTIONS (3)
  - BRONCHITIS [None]
  - INJECTION SITE PAIN [None]
  - PHARYNGITIS STREPTOCOCCAL [None]
